FAERS Safety Report 4698917-6 (Version None)
Quarter: 2005Q2

REPORT INFORMATION
  Report Type: 
  Country: None (occurrence: None)
  Receive Date: 20050624
  Receipt Date: 20050614
  Transmission Date: 20051028
  Serious: Yes (Hospitalization)
  Sender: FDA-Public Use
  Company Number: US-JNJFOC-20050604131

PATIENT
  Sex: Male
  Weight: 142.88 kg

DRUGS (21)
  1. REMICADE [Suspect]
     Indication: RHEUMATOID ARTHRITIS
     Dosage: 2 INFUSIONS
     Route: 042
  2. TOPROL-XL [Concomitant]
  3. TOPROL-XL [Concomitant]
  4. GLUCOTROL XL [Concomitant]
  5. METHOTREXATE [Concomitant]
     Indication: RHEUMATOID ARTHRITIS
  6. PRAVACAL [Concomitant]
     Dosage: 1 AT BEDTIME
  7. LASIX [Concomitant]
  8. PRILOSEC [Concomitant]
     Indication: GASTROINTESTINAL DISORDER
  9. PRINIVAL [Concomitant]
  10. ACTOS [Concomitant]
  11. KLOR-CON [Concomitant]
  12. FOLIC ACID [Concomitant]
  13. CALCIUM GLUCONATE [Concomitant]
  14. MULTI-VITAMIN [Concomitant]
  15. MULTI-VITAMIN [Concomitant]
  16. MULTI-VITAMIN [Concomitant]
  17. MULTI-VITAMIN [Concomitant]
  18. MULTI-VITAMIN [Concomitant]
  19. MULTI-VITAMIN [Concomitant]
  20. MULTI-VITAMIN [Concomitant]
  21. MULTI-VITAMIN [Concomitant]

REACTIONS (4)
  - DYSPNOEA [None]
  - GASTROENTERITIS VIRAL [None]
  - LUNG DISORDER [None]
  - MYOCARDIAL INFARCTION [None]
